FAERS Safety Report 18712367 (Version 3)
Quarter: 2021Q1

REPORT INFORMATION
  Report Type: Report from Study
  Country: US (occurrence: US)
  Receive Date: 20210107
  Receipt Date: 20210308
  Transmission Date: 20210419
  Serious: Yes (Hospitalization)
  Sender: FDA-Public Use
  Company Number: US-JNJFOC-20201251907

PATIENT
  Age: 60 Year
  Sex: Male
  Weight: 69.5 kg

DRUGS (4)
  1. ALDACTONE [Concomitant]
     Active Substance: SPIRONOLACTONE
  2. BUMEX [Concomitant]
     Active Substance: BUMETANIDE
  3. VELETRI [Suspect]
     Active Substance: EPOPROSTENOL
     Indication: PULMONARY ARTERIAL HYPERTENSION
     Route: 042
  4. ADEMPAS [Concomitant]
     Active Substance: RIOCIGUAT

REACTIONS (2)
  - Pulmonary arterial hypertension [Unknown]
  - Right ventricular failure [Unknown]
